FAERS Safety Report 17045578 (Version 1)
Quarter: 2019Q4

REPORT INFORMATION
  Report Type: Other
  Country: US (occurrence: US)
  Receive Date: 20191118
  Receipt Date: 20191118
  Transmission Date: 20200122
  Serious: Yes (Other)
  Sender: FDA-Public Use
  Company Number: US-STANDARD HOMEOPATHIC COMPANY-2076977

PATIENT
  Age: 9 Year
  Sex: Male

DRUGS (1)
  1. HYLAND^S BABY VITAMIN C TABLETS [Suspect]
     Active Substance: DIETARY SUPPLEMENT\SODIUM ASCORBATE
     Indication: NUTRITIONAL SUPPLEMENTATION
     Route: 048
     Dates: start: 20151104, end: 20191104

REACTIONS (4)
  - Cough [Unknown]
  - Dyspnoea [Unknown]
  - Sneezing [Unknown]
  - Rhinorrhoea [Unknown]

NARRATIVE: CASE EVENT DATE: 20191021
